FAERS Safety Report 11282459 (Version 4)
Quarter: 2016Q2

REPORT INFORMATION
  Report Type: Spontaneous
  Country: FR (occurrence: FR)
  Receive Date: 20150720
  Receipt Date: 20160606
  Transmission Date: 20160815
  Serious: Yes (Hospitalization)
  Sender: FDA-Public Use
  Company Number: FR-AUROBINDO-AUR-APL-2015-06024

PATIENT
  Age: 61 Year
  Sex: Male

DRUGS (4)
  1. VANCOMYCIN [Suspect]
     Active Substance: VANCOMYCIN
     Indication: INFECTION
     Dosage: 1 G, DAILY
     Route: 042
     Dates: start: 20150615, end: 20150623
  2. CORDARONE [Suspect]
     Active Substance: AMIODARONE HYDROCHLORIDE
     Indication: PRODUCT USED FOR UNKNOWN INDICATION
     Dosage: 200 MG, DAILY
     Route: 048
     Dates: start: 20150616, end: 20150622
  3. LEVOFLOXACINE ARROW FILM-COATED TABLETS 500MG [Suspect]
     Active Substance: LEVOFLOXACIN
     Indication: INFECTION
     Dosage: 1 G, DAILY
     Route: 042
     Dates: start: 20150615, end: 20150620
  4. VANCOMYCINE [Suspect]
     Active Substance: VANCOMYCIN
     Indication: INFECTION
     Dosage: 3 G, DAILY
     Route: 065
     Dates: start: 20150609, end: 20150611

REACTIONS (6)
  - Asthenia [Recovering/Resolving]
  - Pruritus [Recovering/Resolving]
  - Vascular purpura [Recovered/Resolved]
  - Condition aggravated [Unknown]
  - Oedema [Recovering/Resolving]
  - Arthralgia [Recovering/Resolving]

NARRATIVE: CASE EVENT DATE: 20150619
